FAERS Safety Report 7191721-9 (Version None)
Quarter: 2010Q4

REPORT INFORMATION
  Report Type: 
  Country: None (occurrence: None)
  Receive Date: 20101223
  Receipt Date: 20101216
  Transmission Date: 20110411
  Serious: Yes (Death, Other)
  Sender: FDA-Public Use
  Company Number: GR-ROCHE-749555

PATIENT

DRUGS (2)
  1. RIBAVIRIN [Suspect]
     Route: 065
  2. PEGINTERFERON ALFA-2A [Suspect]
     Route: 065

REACTIONS (4)
  - HAEMOLYSIS [None]
  - IRON OVERLOAD [None]
  - NEUTROPENIA [None]
  - SEPSIS [None]
